FAERS Safety Report 12225058 (Version 2)
Quarter: 2016Q2

REPORT INFORMATION
  Report Type: Report from Study
  Country: AR (occurrence: AR)
  Receive Date: 20160331
  Receipt Date: 20160401
  Transmission Date: 20160815
  Serious: No
  Sender: FDA-Public Use
  Company Number: PHHY2016AR041807

PATIENT
  Age: 75 Year
  Sex: Female

DRUGS (2)
  1. EXFORGE [Suspect]
     Active Substance: AMLODIPINE BESYLATE\VALSARTAN
     Indication: HYPERTENSION
     Dosage: 1 DF (VALSARTAN 160/AMLODIPINE 5), QD
     Route: 065
  2. DIOVAN [Suspect]
     Active Substance: VALSARTAN
     Indication: HYPERTENSION
     Dosage: 1 DF (160), QD
     Route: 065

REACTIONS (6)
  - Blood cholesterol increased [Unknown]
  - Blood triglycerides increased [Unknown]
  - Blood pressure increased [Unknown]
  - Dyspepsia [Unknown]
  - Hiatus hernia [Unknown]
  - Pruritus [Unknown]
